FAERS Safety Report 9878117 (Version 3)
Quarter: 2014Q2

REPORT INFORMATION
  Report Type: Spontaneous
  Country: JP (occurrence: JP)
  Receive Date: 20140206
  Receipt Date: 20140507
  Transmission Date: 20141212
  Serious: Yes (Hospitalization)
  Sender: FDA-Public Use
  Company Number: JP-ABBVIE-14P-087-1197939-00

PATIENT
  Age: 91 Year
  Sex: Male

DRUGS (1)
  1. LEUPLIN FOR INJECTON KIT 3.75 [Suspect]
     Indication: PROSTATE CANCER
     Route: 058

REACTIONS (1)
  - Drug hypersensitivity [Unknown]
